FAERS Safety Report 6970918-4 (Version None)
Quarter: 2010Q3

REPORT INFORMATION
  Report Type: 
  Country: None (occurrence: None)
  Receive Date: 20100908
  Receipt Date: 20100903
  Transmission Date: 20110219
  Serious: Yes (Other)
  Sender: FDA-Public Use
  Company Number: ZA-PFIZER INC-2010106833

PATIENT
  Age: 59 Year
  Sex: Male
  Weight: 68 kg

DRUGS (6)
  1. DETRUSITOL SR [Suspect]
     Indication: HYPERTONIC BLADDER
     Dosage: 4 MG, 1X/DAY
     Route: 048
     Dates: start: 20100706, end: 20100706
  2. ACCUPRIL [Concomitant]
     Dosage: 10 MG, 1X/DAY
     Route: 048
     Dates: start: 20000101
  3. LIPITOR [Concomitant]
     Dosage: UNK
     Route: 048
     Dates: start: 20000101
  4. DIAMICRON [Concomitant]
     Dosage: UNK
     Route: 048
     Dates: start: 20000101
  5. ASPIRIN [Concomitant]
     Dosage: UNK
     Route: 048
     Dates: start: 20000101
  6. GLUCOPHAGE [Concomitant]
     Dosage: UNK
     Route: 048
     Dates: start: 20000101

REACTIONS (6)
  - ANGIOEDEMA [None]
  - DYSPHAGIA [None]
  - DYSPNOEA [None]
  - PALATAL DISORDER [None]
  - PALATAL OEDEMA [None]
  - SPEECH DISORDER [None]
